APPROVED DRUG PRODUCT: XARACOLL
Active Ingredient: BUPIVACAINE HYDROCHLORIDE
Strength: 100MG
Dosage Form/Route: IMPLANT;IMPLANTATION
Application: N209511 | Product #001
Applicant: INNOCOLL PHARMACEUTICALS
Approved: Aug 28, 2020 | RLD: Yes | RS: No | Type: DISCN

PATENTS:
Patent RE47826 | Expires: May 20, 2029
Patent 11746141 | Expires: Jan 9, 2033